FAERS Safety Report 21453628 (Version 2)
Quarter: 2022Q4

REPORT INFORMATION
  Report Type: Spontaneous
  Country: US (occurrence: US)
  Receive Date: 20221013
  Receipt Date: 20221029
  Transmission Date: 20230113
  Serious: Yes (Life-Threatening, Hospitalization)
  Sender: FDA-Public Use
  Company Number: US-TEVA-2022-US-2081700

PATIENT
  Age: 66 Year
  Sex: Male

DRUGS (4)
  1. METHYLPREDNISOLONE [Suspect]
     Active Substance: METHYLPREDNISOLONE
     Indication: Myasthenia gravis
     Dosage: 1 GRAM DAILY; FROM HOSPITAL DAY 3-5.
     Route: 042
  2. METHYLPREDNISOLONE [Suspect]
     Active Substance: METHYLPREDNISOLONE
     Dosage: 1 MG/KG DAILY; FROM HOSPITAL DAY 6
     Route: 042
  3. NIVOLUMAB [Suspect]
     Active Substance: NIVOLUMAB
     Indication: Metastatic malignant melanoma
     Route: 065
  4. IMMUNE GLOBULIN NOS [Suspect]
     Active Substance: IMMUNE GLOBULIN NOS
     Indication: Myasthenia gravis
     Dosage: 2 MG/KG DAILY; FROM HOSPITAL DAYS 15-19
     Route: 042

REACTIONS (4)
  - Myocarditis [Recovering/Resolving]
  - Myasthenia gravis [Recovering/Resolving]
  - Respiratory failure [Recovering/Resolving]
  - Drug ineffective [Unknown]
